FAERS Safety Report 7559244-2 (Version None)
Quarter: 2011Q2

REPORT INFORMATION
  Report Type: 
  Country: None (occurrence: None)
  Receive Date: 20110621
  Receipt Date: 20110610
  Transmission Date: 20111010
  Serious: Yes (Hospitalization, Other)
  Sender: FDA-Public Use
  Company Number: US-ELI_LILLY_AND_COMPANY-US201106004517

PATIENT
  Sex: Male

DRUGS (10)
  1. FORTEO [Suspect]
     Indication: OSTEOPOROSIS
     Dosage: 20 UG, QD
     Dates: start: 20100201, end: 20110428
  2. SIMVASTATIN [Concomitant]
  3. ASPIRIN [Concomitant]
     Dosage: 81 MG, UNK
  4. AMLODIPINE BESYLATE [Concomitant]
     Dosage: 10 MG, UNK
  5. COREG CR [Concomitant]
     Dosage: 10 MG, UNK
  6. OMEPRAZOLE [Concomitant]
     Dosage: 20 MG, UNK
  7. BENICAR [Concomitant]
     Dosage: 40 MG, UNK
  8. DOCUSATE SODIUM [Concomitant]
     Dosage: 250 MG, UNK
  9. VITAMIN TAB [Concomitant]
     Dosage: 1.25 MG, UNK
  10. FISH OIL [Concomitant]

REACTIONS (5)
  - ASTHENIA [None]
  - FALL [None]
  - RIB FRACTURE [None]
  - CARDIAC DISORDER [None]
  - DEHYDRATION [None]
